FAERS Safety Report 4622858-3 (Version None)
Quarter: 2005Q1

REPORT INFORMATION
  Report Type: 
  Country: None (occurrence: None)
  Receive Date: 20050330
  Receipt Date: 20050317
  Transmission Date: 20050727
  Serious: Yes (Life-Threatening, Hospitalization)
  Sender: FDA-Public Use
  Company Number: FR-GLAXOSMITHKLINE-B0375739A

PATIENT
  Age: 36 Year
  Sex: Male
  Weight: 80 kg

DRUGS (6)
  1. ZOPHREN [Suspect]
     Indication: POST PROCEDURAL NAUSEA
     Route: 042
     Dates: start: 20050221, end: 20050221
  2. CELOCURINE [Suspect]
     Indication: INDUCTION OF ANAESTHESIA
     Dosage: 100MG CUMULATIVE DOSE
     Route: 042
     Dates: start: 20050220, end: 20050220
  3. PENTOTHAL [Suspect]
     Indication: INDUCTION OF ANAESTHESIA
     Dosage: 500MG CUMULATIVE DOSE
     Route: 042
     Dates: start: 20050220, end: 20050220
  4. SUPRANE [Suspect]
     Indication: MAINTENANCE OF ANAESTHESIA
     Route: 055
     Dates: start: 20050220, end: 20050221
  5. SUFENTA [Suspect]
     Indication: MAINTENANCE OF ANAESTHESIA
     Dosage: 60MCG CUMULATIVE DOSE
     Route: 042
     Dates: start: 20050220, end: 20050220
  6. NAROPIN [Suspect]
     Indication: POSTOPERATIVE ANALGESIA
     Dosage: 112.5MG CUMULATIVE DOSE
     Route: 042
     Dates: start: 20050221, end: 20050221

REACTIONS (5)
  - BRADYCARDIA [None]
  - SHOCK [None]
  - TORSADE DE POINTES [None]
  - VENTRICULAR FIBRILLATION [None]
  - VENTRICULAR HYPOKINESIA [None]
